FAERS Safety Report 8809614 (Version 1)
Quarter: 2012Q4

REPORT INFORMATION
  Report Type: 
  Country: US (occurrence: US)
  Receive Date: 20120926
  Receipt Date: 20120926
  Transmission Date: 20130627
  Serious: Yes (Death, Other)
  Sender: FDA-Public Use
  Company Number: US-ROCHE-1123724

PATIENT
  Sex: Female

DRUGS (13)
  1. AVASTIN [Suspect]
     Indication: BREAST CANCER FEMALE
     Route: 065
     Dates: start: 20051101
  2. AVASTIN [Suspect]
     Route: 065
     Dates: start: 20051115
  3. AVASTIN [Suspect]
     Route: 065
     Dates: start: 20051129
  4. AVASTIN [Suspect]
     Route: 065
     Dates: start: 20051213
  5. AVASTIN [Suspect]
     Route: 065
     Dates: start: 20051227
  6. XELODA [Suspect]
     Indication: PRODUCT USED FOR UNKNOWN INDICATION
     Route: 065
  7. HERCEPTIN [Suspect]
     Indication: PRODUCT USED FOR UNKNOWN INDICATION
     Route: 065
     Dates: start: 20051101
  8. HERCEPTIN [Suspect]
     Route: 065
     Dates: start: 20051109
  9. HERCEPTIN [Suspect]
     Route: 065
     Dates: start: 20051129
  10. HERCEPTIN [Suspect]
     Route: 065
     Dates: start: 20051219
  11. HERCEPTIN [Suspect]
     Route: 065
     Dates: start: 20060110
  12. LETROZOLE [Concomitant]
  13. ABRAXANE [Concomitant]

REACTIONS (3)
  - Death [Fatal]
  - Radiation pneumonitis [Unknown]
  - Disease progression [Unknown]
